FAERS Safety Report 5769789-3 (Version None)
Quarter: 2008Q2

REPORT INFORMATION
  Report Type: 
  Country: None (occurrence: None)
  Receive Date: 20080612
  Receipt Date: 20080408
  Transmission Date: 20081010
  Serious: No
  Sender: FDA-Public Use
  Company Number: US-ABBOTT-08P-163-0446143-00

PATIENT
  Sex: Female
  Weight: 67.646 kg

DRUGS (9)
  1. HUMIRA [Suspect]
     Indication: RHEUMATOID ARTHRITIS
     Route: 058
     Dates: start: 20071101, end: 20080301
  2. HUMIRA [Suspect]
     Indication: RHEUMATOID ARTHRITIS
     Route: 058
     Dates: start: 20080301
  3. CYANOCOBALAMIN-TANNIN COMPLEX [Concomitant]
     Indication: ANAEMIA
     Route: 048
  4. VITAMINS [Concomitant]
     Indication: DRUG USE FOR UNKNOWN INDICATION
     Route: 048
  5. TYLOX [Concomitant]
     Indication: PAIN
     Route: 048
  6. AMLODIPINE [Concomitant]
     Indication: HYPERTENSION
     Route: 048
  7. ATENOLOL [Concomitant]
     Indication: HEART RATE
     Route: 048
  8. BENECAR [Concomitant]
     Indication: HYPERTENSION
     Route: 048
  9. QUESTRAM [Concomitant]
     Indication: BLOOD CHOLESTEROL
     Route: 048
     Dates: start: 19920101

REACTIONS (9)
  - ANAEMIA [None]
  - CAROTID ARTERY STENOSIS [None]
  - CHILLS [None]
  - DRUG DOSE OMISSION [None]
  - DYSURIA [None]
  - EJECTION FRACTION DECREASED [None]
  - PHARYNGOLARYNGEAL PAIN [None]
  - RHINORRHOEA [None]
  - URINARY TRACT INFECTION [None]
